FAERS Safety Report 4518629-9 (Version None)
Quarter: 2004Q4

REPORT INFORMATION
  Report Type: 
  Country: None (occurrence: None)
  Receive Date: 20041104
  Receipt Date: 20040702
  Transmission Date: 20050328
  Serious: Yes (Life-Threatening, Hospitalization)
  Sender: FDA-Public Use
  Company Number: US_0405103194

PATIENT
  Age: 65 Year
  Sex: Female

DRUGS (13)
  1. VANCOMYCIN [Suspect]
  2. HUMULIN 70/30 [Concomitant]
  3. REGULAR INSULIN [Concomitant]
  4. MICARDIS [Concomitant]
  5. RAMIPRIL [Concomitant]
  6. ATORVASTATIN [Concomitant]
  7. ISORDIL [Concomitant]
  8. METOPROL [Concomitant]
  9. SYNTHROID [Concomitant]
  10. PROTONIX [Concomitant]
  11. WARFARIN SODIUM [Concomitant]
  12. LASIX [Concomitant]
  13. PERROUS GLUCONATE [Concomitant]

REACTIONS (1)
  - RENAL FAILURE ACUTE [None]
